FAERS Safety Report 8107272-0 (Version None)
Quarter: 2012Q1

REPORT INFORMATION
  Report Type: 
  Country: None (occurrence: None)
  Receive Date: 20120202
  Receipt Date: 20120126
  Transmission Date: 20120608
  Serious: Yes (Hospitalization)
  Sender: FDA-Public Use
  Company Number: FR-PFIZER INC-2012021199

PATIENT
  Age: 77 Year
  Sex: Female

DRUGS (14)
  1. BISOPROLOL FUMARATE [Concomitant]
     Dosage: UNK
  2. AMLODIPINE BESYLATE [Concomitant]
     Dosage: UNK
  3. ASPIRIN [Concomitant]
     Dosage: UNK
  4. BACTRIM [Concomitant]
     Dosage: UNK
     Dates: start: 20110814, end: 20110930
  5. MORPHINE SULFATE [Concomitant]
     Dosage: UNK
  6. PERINDOPRIL ERBUMINE [Concomitant]
     Dosage: UNK
  7. ATARAX [Concomitant]
     Dosage: UNK
  8. CLONAZEPAM [Concomitant]
     Dosage: UNK
  9. ATHYMIL [Concomitant]
     Dosage: UNK
  10. CLINDAMYCIN HCL [Suspect]
     Dosage: UNK
     Route: 042
     Dates: start: 20110701, end: 20110930
  11. GENTAMICIN SULFATE [Suspect]
     Dosage: 150 MG, DAILY
     Dates: start: 20110624, end: 20110630
  12. CUBICIN [Suspect]
     Indication: INTERVERTEBRAL DISCITIS
     Dosage: 6 MG/KG, DAILY
     Dates: start: 20110625, end: 20110707
  13. CUBICIN [Suspect]
     Dosage: 4 MG/KG, DAILY
     Dates: start: 20110708, end: 20110813
  14. PANTOPRAZOLE [Concomitant]
     Dosage: UNK

REACTIONS (2)
  - HYPERKALAEMIA [None]
  - BLOOD CREATININE INCREASED [None]
